FAERS Safety Report 6238699-X (Version None)
Quarter: 2009Q2

REPORT INFORMATION
  Report Type: 
  Country: None (occurrence: None)
  Receive Date: 20090622
  Receipt Date: 20090618
  Transmission Date: 20091009
  Serious: Yes (Other)
  Sender: FDA-Public Use
  Company Number: ES-PFIZER INC-2009214931

PATIENT
  Age: 78 Year

DRUGS (10)
  1. ALDACTONE [Suspect]
     Indication: CARDIAC FAILURE
     Dosage: 100 MG, 1X/DAY
     Route: 048
     Dates: start: 20090128, end: 20090205
  2. ATENOLOL [Suspect]
     Dosage: 100 MG, 2X/DAY
     Route: 048
     Dates: start: 20090128, end: 20090209
  3. SEGURIL [Suspect]
     Indication: CARDIAC FAILURE
     Dosage: 20 MG, 3X/DAY
     Route: 042
     Dates: start: 20090128, end: 20090205
  4. ATORVASTATIN [Concomitant]
  5. OMEPRAZOL [Concomitant]
  6. LINEZOLID [Concomitant]
  7. ACTRAPID [Concomitant]
     Indication: DIABETES MELLITUS
     Dosage: 100 IU/ML, UNK
  8. ADIRO [Concomitant]
     Dosage: 100 MG, 2X/DAY
     Route: 048
  9. ENOXAPARIN SODIUM [Concomitant]
     Dosage: 40 MG, 1X/DAY
     Route: 058
  10. TAZOCEL [Concomitant]
     Dosage: UNK
     Dates: start: 20090128

REACTIONS (4)
  - DEPRESSED LEVEL OF CONSCIOUSNESS [None]
  - HYPERNATRAEMIA [None]
  - HYPOKALAEMIA [None]
  - SOMNOLENCE [None]
